FAERS Safety Report 20599818 (Version 1)
Quarter: 2022Q1

REPORT INFORMATION
  Report Type: Spontaneous
  Country: US (occurrence: US)
  Receive Date: 20220316
  Receipt Date: 20220316
  Transmission Date: 20220423
  Serious: Yes (Death, Other)
  Sender: FDA-Public Use
  Company Number: US-ALVOGEN-2022-ALVOGEN-118927

PATIENT
  Age: 25 Year
  Sex: Male

DRUGS (3)
  1. BUPROPION [Suspect]
     Active Substance: BUPROPION
     Indication: Suicide attempt
  2. SODIUM NITRATE [Suspect]
     Active Substance: SODIUM NITRATE
     Indication: Suicide attempt
  3. LITHIUM [Suspect]
     Active Substance: LITHIUM
     Indication: Suicide attempt

REACTIONS (1)
  - Completed suicide [Fatal]
